FAERS Safety Report 7357475-8 (Version None)
Quarter: 2011Q1

REPORT INFORMATION
  Report Type: 
  Country: None (occurrence: None)
  Receive Date: 20110317
  Receipt Date: 20100909
  Transmission Date: 20110831
  Serious: Yes (Hospitalization)
  Sender: FDA-Public Use
  Company Number: US-BAYER-201018550NA

PATIENT
  Sex: Female
  Weight: 77.098 kg

DRUGS (9)
  1. NSAID'S [Concomitant]
     Indication: HYPERTENSION
  2. NAPRELAN [Concomitant]
  3. BONTRIL [Concomitant]
  4. ZANTAC [Concomitant]
  5. PROTONIX [Concomitant]
  6. YAZ [Suspect]
     Route: 048
  7. YASMIN [Suspect]
     Dosage: UNK UNK, UNK
     Route: 048
     Dates: start: 20020101, end: 20060101
  8. YASMIN [Suspect]
     Dosage: UNK
     Dates: start: 20050718, end: 20060615
  9. ZYRTEC [Concomitant]

REACTIONS (3)
  - CHOLECYSTITIS CHRONIC [None]
  - PAIN [None]
  - CHOLELITHIASIS [None]
